FAERS Safety Report 8174179-2 (Version None)
Quarter: 2012Q1

REPORT INFORMATION
  Report Type: 
  Country: None (occurrence: None)
  Receive Date: 20120227
  Receipt Date: 20120216
  Transmission Date: 20120608
  Serious: Yes (Hospitalization)
  Sender: FDA-Public Use
  Company Number: 2012AP000426

PATIENT
  Age: 58 Year
  Sex: Male

DRUGS (4)
  1. METHADON HCL TAB [Suspect]
     Indication: PRODUCT USED FOR UNKNOWN INDICATION
     Dosage: 5 MG;TID
  2. CHLORPROMAZINE HCL [Concomitant]
  3. RISPERIDONE [Suspect]
     Indication: PRODUCT USED FOR UNKNOWN INDICATION
     Dosage: 5 MG;QD
  4. CLONAZEPAM [Suspect]
     Indication: PRODUCT USED FOR UNKNOWN INDICATION
     Dosage: 4 MG;PM

REACTIONS (7)
  - WEIGHT DECREASED [None]
  - VIITH NERVE PARALYSIS [None]
  - DYSPHAGIA [None]
  - AREFLEXIA [None]
  - HYPERPROLACTINAEMIA [None]
  - BULBAR PALSY [None]
  - GYNAECOMASTIA [None]
